FAERS Safety Report 5247101-6 (Version None)
Quarter: 2007Q1

REPORT INFORMATION
  Report Type: 
  Country: None (occurrence: None)
  Receive Date: 20070226
  Receipt Date: 20070216
  Transmission Date: 20070707
  Serious: Yes (Hospitalization)
  Sender: FDA-Public Use
  Company Number: US-MERCK-0702USA01348

PATIENT
  Age: 44 Year
  Sex: Female

DRUGS (3)
  1. EMEND [Suspect]
     Indication: CHEMOTHERAPY
     Route: 048
     Dates: start: 20061208, end: 20061209
  2. NEULASTA [Suspect]
     Route: 065
     Dates: start: 20061209
  3. ANTINEOPLASTIC (UNSPECIFIED) [Concomitant]
     Route: 065
     Dates: start: 20061208

REACTIONS (3)
  - PRURITUS [None]
  - RASH [None]
  - URTICARIA [None]
